FAERS Safety Report 7459500-2 (Version None)
Quarter: 2011Q2

REPORT INFORMATION
  Report Type: 
  Country: None (occurrence: None)
  Receive Date: 20110505
  Receipt Date: 20110427
  Transmission Date: 20111010
  Serious: Yes (Death, Other)
  Sender: FDA-Public Use
  Company Number: TH-GENZYME-CLOF-1001231

PATIENT
  Sex: Male
  Weight: 80 kg

DRUGS (10)
  1. CHLORAMPHENICOL [Concomitant]
     Indication: PRODUCT USED FOR UNKNOWN INDICATION
     Dosage: 5 GM/EYE OF 1%
     Route: 047
     Dates: start: 20100817, end: 20100927
  2. METHYLPREDNISOLONE [Concomitant]
     Indication: PRODUCT USED FOR UNKNOWN INDICATION
     Dosage: 1000 MG, QD
     Route: 042
     Dates: start: 20100924, end: 20100926
  3. COTRIMAZOLE [Concomitant]
     Indication: PRODUCT USED FOR UNKNOWN INDICATION
     Dosage: 0.75 G, UNK, 12 TIMES DAILY IN THE MORNING
     Route: 061
     Dates: start: 20100817, end: 20100817
  4. COTRIM [Concomitant]
     Indication: PRODUCT USED FOR UNKNOWN INDICATION
     Dosage: UNK
     Route: 048
     Dates: start: 20100816, end: 20100824
  5. EVOLTRA [Suspect]
     Indication: ACUTE MYELOID LEUKAEMIA
     Dosage: 40 MG/M2, QD
     Route: 042
     Dates: start: 20100915, end: 20100918
  6. VANCOMYCIN [Concomitant]
     Indication: PRODUCT USED FOR UNKNOWN INDICATION
     Dosage: 1 G, BID
     Route: 042
     Dates: start: 20100912, end: 20100923
  7. VORICONAZOLE [Concomitant]
     Indication: PRODUCT USED FOR UNKNOWN INDICATION
     Dosage: 200 MG, UNK
     Route: 048
     Dates: start: 20100821, end: 20100923
  8. DEXAMETHASONE [Concomitant]
     Indication: PRODUCT USED FOR UNKNOWN INDICATION
     Dosage: UNK
     Route: 065
     Dates: start: 20100815, end: 20100924
  9. ALLOPURINOL [Concomitant]
     Indication: PRODUCT USED FOR UNKNOWN INDICATION
     Dosage: 300 MG, QD IN THE MORINING
     Route: 048
     Dates: start: 20100828, end: 20100917
  10. HYDROXYUREA [Concomitant]
     Indication: PRODUCT USED FOR UNKNOWN INDICATION
     Dosage: 1000 MG,  IN THE MORNING
     Route: 048
     Dates: start: 20100831, end: 20100920

REACTIONS (6)
  - SEPSIS [None]
  - SKIN INFECTION [None]
  - PANCYTOPENIA [None]
  - THERMAL BURN [None]
  - INFUSION RELATED REACTION [None]
  - SKIN EXFOLIATION [None]
